FAERS Safety Report 22343700 (Version 2)
Quarter: 2023Q2

REPORT INFORMATION
  Report Type: Spontaneous
  Country: US (occurrence: US)
  Receive Date: 20230519
  Receipt Date: 20230605
  Transmission Date: 20230721
  Serious: No
  Sender: FDA-Public Use
  Company Number: US-SANOFI-01618445

PATIENT
  Age: 66 Year
  Sex: Male

DRUGS (1)
  1. SOLIQUA 100/33 [Suspect]
     Active Substance: INSULIN GLARGINE\LIXISENATIDE
     Indication: Type 2 diabetes mellitus
     Dosage: 50-52 UNITS 1X AND DRUG TREATMENT DURATION:ABOUT FIVE OR SIX YEARS
     Route: 065

REACTIONS (2)
  - Hypersensitivity [Unknown]
  - Accidental exposure to product [Unknown]
